FAERS Safety Report 18786229 (Version 4)
Quarter: 2023Q2

REPORT INFORMATION
  Report Type: Report from Study
  Country: JP (occurrence: JP)
  Receive Date: 20210125
  Receipt Date: 20230407
  Transmission Date: 20230721
  Serious: Yes (Hospitalization, Other)
  Sender: FDA-Public Use
  Company Number: JP-SHIRE-JP201409174

PATIENT
  Age: 4 Year
  Sex: Male

DRUGS (53)
  1. VELAGLUCERASE ALFA [Suspect]
     Active Substance: VELAGLUCERASE ALFA
     Indication: Gaucher^s disease type II
     Dosage: 60 IU, 1X/2WKS (1X/3WKS ON OCCASION)
     Route: 041
     Dates: start: 20141024
  2. AMBROXOL HYDROCHLORIDE [Concomitant]
     Active Substance: AMBROXOL HYDROCHLORIDE
     Indication: Gaucher^s disease
     Dosage: 270-345 MG/DAY
     Route: 048
     Dates: end: 20160720
  3. CERCINE [Concomitant]
     Active Substance: DIAZEPAM
     Indication: Gaucher^s disease
     Dosage: 12 ML/DAY
     Route: 048
     Dates: end: 20150501
  4. CERCINE [Concomitant]
     Active Substance: DIAZEPAM
     Dosage: 7.5 MILLIGRAM
     Route: 048
     Dates: end: 20200414
  5. CERCINE [Concomitant]
     Active Substance: DIAZEPAM
     Dosage: 9 MILLIGRAM
     Route: 048
     Dates: start: 20200415, end: 20211019
  6. CERCINE [Concomitant]
     Active Substance: DIAZEPAM
     Dosage: 12 MILLIGRAM
     Route: 048
     Dates: start: 20211020
  7. TIZANIDINE [Concomitant]
     Active Substance: TIZANIDINE
     Indication: Gaucher^s disease
     Dosage: 0.9-3.2 MG/DAY
     Route: 048
     Dates: end: 20200214
  8. TIZANIDINE [Concomitant]
     Active Substance: TIZANIDINE
     Dosage: 3.6 MILLIGRAM
     Dates: start: 20200215, end: 20211014
  9. TIZANIDINE [Concomitant]
     Active Substance: TIZANIDINE
     Dosage: 5 MILLIGRAM
     Dates: start: 20200215
  10. WINTERMIN                          /00011902/ [Concomitant]
     Indication: Gaucher^s disease
     Dosage: 20 MILLIGRAM, UNKNOWN
     Route: 048
     Dates: end: 20170307
  11. WINTERMIN                          /00011902/ [Concomitant]
     Dosage: 30 MILLIGRAM, UNKNOWN
     Route: 048
     Dates: start: 20170308, end: 20180417
  12. WINTERMIN                          /00011902/ [Concomitant]
     Dosage: 35 MILLIGRAM, UNKNOWN
     Route: 048
     Dates: start: 20180418
  13. RISPERDAL [Concomitant]
     Active Substance: RISPERIDONE
     Indication: Gaucher^s disease
     Dosage: 1.2 MG/DAY
     Route: 048
     Dates: end: 20200317
  14. RISPERDAL [Concomitant]
     Active Substance: RISPERIDONE
     Dosage: 1.6 MG/DAY
     Route: 048
     Dates: start: 20200318
  15. FENTANYL [Concomitant]
     Active Substance: FENTANYL
     Indication: Gaucher^s disease
     Dosage: 3 MG/DAY
     Route: 062
     Dates: end: 20160927
  16. FENTANYL [Concomitant]
     Active Substance: FENTANYL
     Dosage: 2 MG/DAY
     Route: 062
     Dates: start: 20160928, end: 20161011
  17. MOSAPRIDE CITRATE [Concomitant]
     Active Substance: MOSAPRIDE CITRATE
     Indication: Product used for unknown indication
     Dosage: 8 MG/DAY
     Route: 048
  18. CEFACLOR [Concomitant]
     Active Substance: CEFACLOR
     Indication: Prophylaxis
     Dosage: 150 MG, 1X/DAY:QD
     Route: 048
  19. LACTOBACILLUS ACIDOPHILUS\STREPTOCOCCUS FAECAIS [Concomitant]
     Active Substance: LACTOBACILLUS ACIDOPHILUS\STREPTOCOCCUS FAECAIS
     Indication: Prophylaxis
     Dosage: 1 G/DAY
     Route: 048
  20. PHENOBARBITAL [Concomitant]
     Active Substance: PHENOBARBITAL
     Indication: Gaucher^s disease
     Dosage: 50-170 MG, UNKNOWN
     Route: 048
     Dates: end: 20190626
  21. PHENOBARBITAL [Concomitant]
     Active Substance: PHENOBARBITAL
     Dosage: 180 MILLIGRAM, UNKNOWN
     Route: 048
     Dates: start: 20161203
  22. PHENOBARBITAL [Concomitant]
     Active Substance: PHENOBARBITAL
     Dosage: 120 MILLIGRAM, UNKNOWN
     Route: 048
     Dates: start: 20170110
  23. PHENOBARBITAL [Concomitant]
     Active Substance: PHENOBARBITAL
     Dosage: 180 MILLIGRAM, UNKNOWN
     Route: 048
     Dates: start: 20190627
  24. DIAZEPAM [Concomitant]
     Active Substance: DIAZEPAM
     Indication: Gaucher^s disease
     Dosage: 9 MG/DAY
     Route: 048
     Dates: end: 20151228
  25. DIAZEPAM [Concomitant]
     Active Substance: DIAZEPAM
     Indication: Gaucher^s disease
     Dosage: 7.5 MG, UNKNOWN
     Dates: start: 20150502
  26. DIAZEPAM [Concomitant]
     Active Substance: DIAZEPAM
     Indication: Product used for unknown indication
  27. LEVOCARNITINE [Concomitant]
     Active Substance: LEVOCARNITINE
     Indication: Prophylaxis
     Dosage: 200 MG/DAY
     Route: 048
     Dates: start: 20141230, end: 20190704
  28. LEVOCARNITINE [Concomitant]
     Active Substance: LEVOCARNITINE
     Indication: Gaucher^s disease
  29. ALFAROL [Concomitant]
     Active Substance: ALFACALCIDOL
     Indication: Prophylaxis
     Dosage: 0.5 UG, 1X/DAY:QD
     Route: 048
     Dates: start: 20150306
  30. ATARAX-P                           /00058402/ [Concomitant]
     Indication: Premedication
     Dosage: 12.5 MG/DAY
     Route: 042
  31. SULFAMETHOXAZOLE\TRIMETHOPRIM [Concomitant]
     Active Substance: SULFAMETHOXAZOLE\TRIMETHOPRIM
     Indication: Prophylaxis
     Dosage: 0.27 GRAM, QD
     Route: 048
     Dates: start: 20151015
  32. MORPHINE HYDROCHLORIDE [Concomitant]
     Active Substance: MORPHINE HYDROCHLORIDE
     Indication: Gaucher^s disease
     Dosage: 60 MG, UNKNOWN
     Route: 048
     Dates: start: 20161012, end: 20161025
  33. MORPHINE HYDROCHLORIDE [Concomitant]
     Active Substance: MORPHINE HYDROCHLORIDE
     Dosage: 36 MG, UNKNOWN
     Route: 048
     Dates: start: 20161026, end: 20161108
  34. MORPHINE HYDROCHLORIDE [Concomitant]
     Active Substance: MORPHINE HYDROCHLORIDE
     Dosage: 18 MG, UNKNOWN
     Route: 048
     Dates: start: 20161124, end: 20161207
  35. MORPHINE HYDROCHLORIDE [Concomitant]
     Active Substance: MORPHINE HYDROCHLORIDE
     Dosage: 9 MG, UNKNOWN
     Route: 048
     Dates: start: 20161208, end: 20170221
  36. MORPHINE HYDROCHLORIDE [Concomitant]
     Active Substance: MORPHINE HYDROCHLORIDE
     Dosage: 6 MG, UNKNOWN
     Route: 048
     Dates: start: 20170222, end: 20170307
  37. MORPHINE HYDROCHLORIDE [Concomitant]
     Active Substance: MORPHINE HYDROCHLORIDE
     Dosage: 3 MG, UNKNOWN
     Route: 048
     Dates: start: 20170308, end: 20170321
  38. GABAPENTIN [Concomitant]
     Active Substance: GABAPENTIN
     Indication: Gaucher^s disease
     Dosage: 5.6 ML-16.0 ML, UNKNOWN
     Route: 048
     Dates: start: 20160517, end: 20160525
  39. GABAPENTIN [Concomitant]
     Active Substance: GABAPENTIN
     Dosage: 1000 MILLIGRAM
     Route: 048
     Dates: start: 20170419, end: 20211013
  40. GABAPENTIN [Concomitant]
     Active Substance: GABAPENTIN
     Dosage: 1500 MILLIGRAM
     Route: 048
     Dates: start: 20211014
  41. GABAPENTIN [Concomitant]
     Active Substance: GABAPENTIN
     Indication: Gaucher^s disease
     Dosage: 800 MG, UNKNOWN
     Route: 048
     Dates: start: 20160526, end: 20170124
  42. GABAPENTIN [Concomitant]
     Active Substance: GABAPENTIN
     Dosage: 1000 MG, UNK
     Dates: start: 20170125, end: 20170418
  43. PHENOBARBITAL SODIUM [Concomitant]
     Active Substance: PHENOBARBITAL SODIUM
     Indication: Gaucher^s disease
     Dosage: 250 MILLIGRAM, UNKNOWN
     Route: 042
     Dates: start: 20161230, end: 20170109
  44. AMBROXOL HYDROCHLORIDE [Concomitant]
     Active Substance: AMBROXOL HYDROCHLORIDE
     Indication: Gaucher^s disease
     Dosage: 345 MG, UNKNOWN
     Route: 048
     Dates: start: 20160720, end: 20170720
  45. AMBROXOL HYDROCHLORIDE [Concomitant]
     Active Substance: AMBROXOL HYDROCHLORIDE
     Dosage: 390 MG, UNKNOWN
     Route: 048
     Dates: start: 20160721, end: 20180109
  46. AMBROXOL HYDROCHLORIDE [Concomitant]
     Active Substance: AMBROXOL HYDROCHLORIDE
     Dosage: 450 MG, UNKNOWN
     Route: 048
     Dates: start: 20180110, end: 20190417
  47. AMBROXOL HYDROCHLORIDE [Concomitant]
     Active Substance: AMBROXOL HYDROCHLORIDE
     Dosage: 540 MG, UNKNOWN
     Route: 048
     Dates: start: 20190418, end: 20200217
  48. CLONAZEPAM [Concomitant]
     Active Substance: CLONAZEPAM
     Indication: Gaucher^s disease
     Dosage: 0.1MG-0.5MG
     Route: 048
     Dates: start: 20190406, end: 20200129
  49. CLONAZEPAM [Concomitant]
     Active Substance: CLONAZEPAM
     Dosage: 0.6 MILLIGRAM
     Route: 048
     Dates: start: 20200624, end: 20211011
  50. CLONAZEPAM [Concomitant]
     Active Substance: CLONAZEPAM
     Dosage: 1.2 MILLIGRAM
     Route: 048
     Dates: start: 20211011
  51. AMBROXOL HYDROCHLORIDE [Concomitant]
     Active Substance: AMBROXOL HYDROCHLORIDE
     Indication: Gaucher^s disease
     Dosage: 600 MILLIGRAM
     Route: 048
     Dates: start: 20200218, end: 20211009
  52. AMBROXOL HYDROCHLORIDE [Concomitant]
     Active Substance: AMBROXOL HYDROCHLORIDE
     Dosage: 700 MILLIGRAM
     Route: 048
     Dates: start: 20211011
  53. MOSAPRIDE CITRATE [Concomitant]
     Active Substance: MOSAPRIDE CITRATE
     Indication: Product used for unknown indication
     Dosage: 8 MILLIGRAM
     Route: 048

REACTIONS (14)
  - Urinary tract infection [Recovered/Resolved]
  - Urinary tract infection [Recovered/Resolved]
  - Vesicoureteric reflux [Recovered/Resolved]
  - Pyelonephritis acute [Recovered/Resolved]
  - Urinary tract infection [Recovered/Resolved]
  - Hepatic function abnormal [Not Recovered/Not Resolved]
  - Myoclonus [Recovered/Resolved]
  - Vomiting [Recovered/Resolved]
  - Hepatic function abnormal [Recovered/Resolved]
  - Gastritis [Not Recovered/Not Resolved]
  - Upper respiratory tract inflammation [Recovered/Resolved]
  - Urinary tract infection [Recovered/Resolved]
  - Respiratory syncytial virus infection [Recovered/Resolved]
  - Urinary tract infection [Recovered/Resolved]

NARRATIVE: CASE EVENT DATE: 20141205
